FAERS Safety Report 5006784-6 (Version None)
Quarter: 2006Q2

REPORT INFORMATION
  Report Type: 
  Country: None (occurrence: None)
  Receive Date: 20060519
  Receipt Date: 20060329
  Transmission Date: 20061013
  Serious: Yes (Hospitalization, Other)
  Sender: FDA-Public Use
  Company Number: PHBS2006JP04848

PATIENT
  Age: 72 Year
  Sex: Female
  Weight: 55 kg

DRUGS (10)
  1. DIOVAN [Suspect]
     Dosage: 80 MG/DAY
     Route: 048
     Dates: start: 20050620, end: 20060329
  2. LIVALO [Concomitant]
     Dosage: 2 MG, UNK
     Route: 048
     Dates: start: 20050624, end: 20060306
  3. PARIET [Concomitant]
     Dosage: 10 MG, UNK
     Route: 048
     Dates: start: 20050819, end: 20060306
  4. PANALDINE [Concomitant]
     Dosage: 200 MG, UNK
     Route: 048
     Dates: start: 20050620, end: 20060306
  5. ASPIRIN [Concomitant]
     Dosage: 100 MG, UNK
     Route: 048
     Dates: start: 20050620
  6. MUCOSTA [Concomitant]
     Dosage: 300 MG, UNK
     Route: 048
     Dates: start: 20050819
  7. CEREKINON [Concomitant]
     Dosage: 300 MG, UNK
     Route: 048
     Dates: start: 20050819
  8. AMLODIN [Concomitant]
     Dosage: 2.5 MG, UNK
     Route: 048
     Dates: start: 20051028
  9. ISOSORBIDE MONONITRATE [Concomitant]
     Dosage: 40 MG, UNK
     Route: 048
     Dates: start: 20051209
  10. GASTER D [Concomitant]
     Dates: start: 20050620, end: 20050819

REACTIONS (2)
  - CHEST X-RAY ABNORMAL [None]
  - INTERSTITIAL LUNG DISEASE [None]
